FAERS Safety Report 16356292 (Version 5)
Quarter: 2020Q1

REPORT INFORMATION
  Report Type: Report from Study
  Country: None (occurrence: US)
  Receive Date: 20190527
  Receipt Date: 20200211
  Transmission Date: 20200409
  Serious: Yes (Other)
  Sender: FDA-Public Use
  Company Number: US-ABBVIE-19K-163-2749771-00

PATIENT
  Age: 51 Year
  Sex: Female
  Weight: 99.88 kg

DRUGS (2)
  1. HUMIRA [Suspect]
     Active Substance: ADALIMUMAB
     Indication: COLITIS ULCERATIVE
  2. HUMIRA [Suspect]
     Active Substance: ADALIMUMAB
     Indication: PSORIASIS
     Route: 058
     Dates: start: 2013

REACTIONS (21)
  - Wheelchair user [Unknown]
  - Hypertension [Unknown]
  - Vitamin D deficiency [Unknown]
  - Blood glucose increased [Recovering/Resolving]
  - Diarrhoea [Not Recovered/Not Resolved]
  - Sleep apnoea syndrome [Unknown]
  - Oedema [Recovering/Resolving]
  - Decubitus ulcer [Recovered/Resolved]
  - Decubitus ulcer [Recovered/Resolved]
  - Myocardial infarction [Unknown]
  - Carotid artery occlusion [Unknown]
  - Myocardial infarction [Recovered/Resolved]
  - Fatigue [Unknown]
  - Nail bed bleeding [Unknown]
  - Limb injury [Recovered/Resolved]
  - Inflammation [Unknown]
  - Type 1 diabetes mellitus [Recovering/Resolving]
  - Paraplegia [Unknown]
  - Psoriasis [Unknown]
  - Back pain [Not Recovered/Not Resolved]
  - Onychomycosis [Unknown]

NARRATIVE: CASE EVENT DATE: 2014
